FAERS Safety Report 7235984-X (Version None)
Quarter: 2011Q1

REPORT INFORMATION
  Report Type: 
  Country: None (occurrence: None)
  Receive Date: 20110120
  Receipt Date: 20110117
  Transmission Date: 20110831
  Serious: Yes (Other)
  Sender: FDA-Public Use
  Company Number: B0694116A

PATIENT

DRUGS (1)
  1. SERETIDE [Suspect]
     Indication: ASTHMA
     Route: 065

REACTIONS (4)
  - INFLUENZA [None]
  - ASTHMA [None]
  - VIRAL INFECTION [None]
  - NASOPHARYNGITIS [None]
